FAERS Safety Report 13697375 (Version 1)
Quarter: 2017Q2

REPORT INFORMATION
  Report Type: Spontaneous
  Country: US (occurrence: US)
  Receive Date: 20170628
  Receipt Date: 20170628
  Transmission Date: 20170830
  Serious: Yes (Other)
  Sender: FDA-Public Use
  Company Number: None

PATIENT
  Sex: Female
  Weight: 78.93 kg

DRUGS (11)
  1. CARISOPRODOL. [Concomitant]
     Active Substance: CARISOPRODOL
  2. ALLOPURINOL. [Concomitant]
     Active Substance: ALLOPURINOL
  3. AMITRIPTYLINE [Concomitant]
     Active Substance: AMITRIPTYLINE
  4. DONEPEZIL. [Concomitant]
     Active Substance: DONEPEZIL
  5. ZEPATIER [Suspect]
     Active Substance: ELBASVIR\GRAZOPREVIR
     Indication: HEPATITIS C
     Dosage: FREQUENCY - 2
     Route: 048
     Dates: start: 20170222, end: 20170510
  6. GLIMEPIRIDE. [Concomitant]
     Active Substance: GLIMEPIRIDE
  7. RIBAVIRIN 200 MG [Suspect]
     Active Substance: RIBAVIRIN
     Dosage: FREQUENCY - 2
     Route: 048
  8. METOPROLOL. [Concomitant]
     Active Substance: METOPROLOL
  9. FOSEMIDE [Concomitant]
  10. PARACALCITOL [Concomitant]
     Active Substance: PARICALCITOL
  11. CLONIDINE. [Concomitant]
     Active Substance: CLONIDINE

REACTIONS (12)
  - Dyspnoea [None]
  - Nausea [None]
  - Headache [None]
  - Lethargy [None]
  - Throat irritation [None]
  - Haemoglobin decreased [None]
  - Gait disturbance [None]
  - Suicide attempt [None]
  - Depression [None]
  - Asthenia [None]
  - Dizziness [None]
  - Tinea infection [None]
